FAERS Safety Report 8595709-2 (Version None)
Quarter: 2012Q3

REPORT INFORMATION
  Report Type: 
  Country: None (occurrence: None)
  Receive Date: 20120815
  Receipt Date: 20120801
  Transmission Date: 20120928
  Serious: Yes (Other)
  Sender: FDA-Public Use
  Company Number: CA-ROCHE-1087430

PATIENT
  Sex: Male

DRUGS (4)
  1. ZELBORAF [Suspect]
     Indication: METASTATIC MALIGNANT MELANOMA
     Route: 048
     Dates: start: 20120630, end: 20120710
  2. TYLENOL [Concomitant]
     Indication: HEADACHE
  3. TYLENOL [Concomitant]
     Indication: ARTHRITIS
  4. ZELBORAF [Suspect]
     Dates: start: 20120725, end: 20120726

REACTIONS (8)
  - RENAL FAILURE [None]
  - HYPOTENSION [None]
  - SUNBURN [None]
  - PRURITUS [None]
  - RASH GENERALISED [None]
  - PARAESTHESIA [None]
  - BLISTER [None]
  - BLOOD GLUCOSE INCREASED [None]
